FAERS Safety Report 23626505 (Version 2)
Quarter: 2024Q1

REPORT INFORMATION
  Report Type: Spontaneous
  Country: US (occurrence: US)
  Receive Date: 20240313
  Receipt Date: 20240327
  Transmission Date: 20240410
  Serious: Yes (Hospitalization, Other)
  Sender: FDA-Public Use
  Company Number: US-MLMSERVICE-20240228-4846892-3

PATIENT
  Age: 60 Year
  Sex: Male
  Weight: 84 kg

DRUGS (9)
  1. TACROLIMUS [Suspect]
     Active Substance: TACROLIMUS
     Indication: Immunosuppressant drug therapy
     Dosage: TROUGH GOAL IN 12-15 NG/ML
  2. TACROLIMUS [Suspect]
     Active Substance: TACROLIMUS
     Dosage: TROUGH GOAL IN 12-15 NG/ML
  3. NIRMATRELVIR [Suspect]
     Active Substance: NIRMATRELVIR
     Indication: COVID-19
     Dosage: TOOK 2 DOSES
  4. NIRMATRELVIR [Suspect]
     Active Substance: NIRMATRELVIR
     Dosage: TOOK 2 DOSES
  5. RITONAVIR [Suspect]
     Active Substance: RITONAVIR
     Indication: COVID-19
     Dosage: TOOK 2 DOSES
  6. RITONAVIR [Suspect]
     Active Substance: RITONAVIR
     Dosage: TOOK 2 DOSES
  7. MYCOPHENOLATE MOFETIL [Concomitant]
     Active Substance: MYCOPHENOLATE MOFETIL
     Indication: Immunosuppressant drug therapy
  8. ITRACONAZOLE [Concomitant]
     Active Substance: ITRACONAZOLE
     Indication: Antifungal prophylaxis
  9. WARFARIN [Concomitant]
     Active Substance: WARFARIN
     Indication: Product used for unknown indication

REACTIONS (5)
  - Toxicity to various agents [Recovered/Resolved]
  - Drug interaction [Recovered/Resolved]
  - Immunosuppressant drug level increased [Recovered/Resolved]
  - Hyperkalaemia [Unknown]
  - Acute kidney injury [Recovered/Resolved]
